FAERS Safety Report 7310348-9 (Version None)
Quarter: 2011Q1

REPORT INFORMATION
  Report Type: 
  Country: None (occurrence: None)
  Receive Date: 20110224
  Receipt Date: 20110218
  Transmission Date: 20110831
  Serious: Yes (Hospitalization)
  Sender: FDA-Public Use
  Company Number: US-ABBOTT-11P-163-0706605-00

PATIENT
  Sex: Female
  Weight: 74.91 kg

DRUGS (7)
  1. CIMZIA [Suspect]
     Indication: CROHN'S DISEASE
     Dates: start: 20090701
  2. WELLBUTRIN [Concomitant]
     Indication: PRODUCT USED FOR UNKNOWN INDICATION
  3. VERAPAMIL [Concomitant]
     Indication: PRODUCT USED FOR UNKNOWN INDICATION
  4. HUMIRA [Suspect]
     Dosage: 1ST LOADING DOSE, ONCE
     Route: 058
     Dates: start: 20110119, end: 20110119
  5. ZOLOFT [Concomitant]
     Indication: PRODUCT USED FOR UNKNOWN INDICATION
  6. HUMIRA [Suspect]
     Indication: CROHN'S DISEASE
     Route: 058
  7. HUMIRA [Suspect]
     Dosage: 2ND LOADING DOSE
     Route: 058
     Dates: start: 20110207, end: 20110207

REACTIONS (7)
  - WEIGHT INCREASED [None]
  - DEHYDRATION [None]
  - INJECTION SITE HAEMATOMA [None]
  - INJECTION SITE NODULE [None]
  - OEDEMA [None]
  - PNEUMONIA [None]
  - INJECTION SITE REACTION [None]
